FAERS Safety Report 8819928 (Version 2)
Quarter: 2012Q4

REPORT INFORMATION
  Report Type: Report from Study
  Country: RU (occurrence: RU)
  Receive Date: 20121001
  Receipt Date: 20121114
  Transmission Date: 20130627
  Serious: Yes (Death, Other)
  Sender: FDA-Public Use
  Company Number: RU-009507513-1201USA02593

PATIENT
  Age: 42 Year
  Sex: Male
  Weight: 70 kg

DRUGS (6)
  1. ISENTRESS [Suspect]
     Dosage: 1 DF, bid
     Route: 048
     Dates: start: 20111209, end: 20120925
  2. KIVEXA [Suspect]
     Dosage: 1 DF, qd
     Route: 048
     Dates: start: 20111209, end: 20120925
  3. RIFABUTIN [Concomitant]
     Dosage: UNK
     Dates: start: 20111029, end: 20120925
  4. SORBIFER (FERROUS SULFATE) [Concomitant]
     Dosage: 1 DF, qid
     Route: 048
  5. MAGNE B6 TABLETS [Concomitant]
     Dosage: 1 DF, bid
     Route: 048
  6. FOLIC ACID [Concomitant]
     Dosage: 1 DF, bid
     Route: 048

REACTIONS (5)
  - Intestinal haemorrhage [Fatal]
  - Anaemia [Fatal]
  - Intestinal haemorrhage [Recovered/Resolved]
  - Cachexia [Fatal]
  - Amyloidosis [Unknown]
